FAERS Safety Report 9193902 (Version 2)
Quarter: 2013Q2

REPORT INFORMATION
  Report Type: Spontaneous
  Country: US (occurrence: None)
  Receive Date: 20130325
  Receipt Date: 20130410
  Transmission Date: 20140414
  Serious: Yes (Hospitalization)
  Sender: FDA-Public Use
  Company Number: 2013SGN00133

PATIENT
  Age: 38 Year
  Sex: Male

DRUGS (5)
  1. BRENTUXIMAB VEDOTIN (BRENTUXIMAB VEDOTIN) INJECTION [Suspect]
     Indication: HODGKIN^S DISEASE
     Dosage: 1.2 MG/KG, QCYCLE, INTRAVENOUS
     Dates: start: 20121227, end: 20130207
  2. IFOSFAMIDE [Suspect]
     Indication: HODGKIN^S DISEASE
     Dosage: 5000 MG/M2, QCYCLE, INTRAVENOUS
     Dates: start: 20130219, end: 20130219
  3. MESNA [Suspect]
     Indication: PROPHYLAXIS
     Dosage: 5000 MG/M2, QCYCLE, INTRAVENOUS
     Dates: start: 20130219, end: 20130219
  4. CARBOPLATIN (CARBOPLATIN) [Suspect]
     Indication: HODGKIN^S DISEASE
     Dosage: QCYCLE, INTRAVENOUS
     Dates: start: 20130221, end: 20130221
  5. ETOPOSIDE [Suspect]
     Indication: HODGKIN^S DISEASE
     Dosage: 200 MG/M2, QCYCLE, INTRAVENOUS
     Dates: start: 20130219, end: 20130219

REACTIONS (1)
  - Febrile neutropenia [None]
